FAERS Safety Report 18152035 (Version 3)
Quarter: 2020Q3

REPORT INFORMATION
  Report Type: Report from Study
  Country: FR (occurrence: FR)
  Receive Date: 20200814
  Receipt Date: 20200901
  Transmission Date: 20201103
  Serious: Yes (Death, Life-Threatening, Hospitalization)
  Sender: FDA-Public Use
  Company Number: FR-PFIZER INC-2020308701

PATIENT
  Age: 78 Year
  Sex: Male
  Weight: 70 kg

DRUGS (6)
  1. PEMBROLIZUMAB. [Suspect]
     Active Substance: PEMBROLIZUMAB
     Indication: NON-SMALL CELL LUNG CANCER
     Dosage: 200 MG, EVERY 3 WEEKS
     Route: 042
     Dates: start: 20191120, end: 20200122
  2. CYANOCOBALAMIN. [Concomitant]
     Active Substance: CYANOCOBALAMIN
     Dosage: UNK
     Dates: start: 20191113
  3. CARBOPLATIN. [Suspect]
     Active Substance: CARBOPLATIN
     Indication: NON-SMALL CELL LUNG CANCER
     Dosage: 440 MG, EVERY 3 WEEKS
     Route: 042
     Dates: start: 20191120, end: 20200122
  4. PEMETREXED. [Suspect]
     Active Substance: PEMETREXED
     Indication: NON-SMALL CELL LUNG CANCER
     Dosage: 500 MG/M2, EVERY 3 WEEKS
     Route: 042
     Dates: start: 20191120, end: 20200122
  5. FOLIC ACID. [Concomitant]
     Active Substance: FOLIC ACID
     Dosage: UNK
     Dates: start: 20191113
  6. SODIUM CHLORIDE. [Concomitant]
     Active Substance: SODIUM CHLORIDE
     Dosage: UNK
     Dates: start: 20200117

REACTIONS (14)
  - Lung disorder [Fatal]
  - Septic shock [Fatal]
  - Necrotising myositis [Fatal]
  - Respiratory failure [Fatal]
  - Alanine aminotransferase abnormal [Fatal]
  - Shock [Fatal]
  - Serratia infection [Fatal]
  - Dyspnoea [Fatal]
  - Respiratory distress [Fatal]
  - Blood creatine phosphokinase abnormal [Fatal]
  - Necrotising myositis [Fatal]
  - Aspartate aminotransferase abnormal [Fatal]
  - Lung disorder [Fatal]
  - Alpha haemolytic streptococcal infection [Fatal]

NARRATIVE: CASE EVENT DATE: 20200121
